FAERS Safety Report 21151305 (Version 6)
Quarter: 2025Q2

REPORT INFORMATION
  Report Type: Spontaneous
  Country: RO (occurrence: RO)
  Receive Date: 20220730
  Receipt Date: 20250529
  Transmission Date: 20250717
  Serious: Yes (Hospitalization, Other)
  Sender: AUROBINDO
  Company Number: RO-MEDO2008-L202207050

PATIENT
  Age: 12 Year
  Sex: Female

DRUGS (11)
  1. PANTOPRAZOLE [Suspect]
     Active Substance: PANTOPRAZOLE
     Indication: Product used for unknown indication
     Route: 042
  2. CEFTRIAXONE [Suspect]
     Active Substance: CEFTRIAXONE
     Indication: Antibiotic prophylaxis
     Dosage: 100 MILLIGRAM/KILOGRAM, ONCE A DAY
     Route: 065
  3. ESOMEPRAZOLE [Suspect]
     Active Substance: ESOMEPRAZOLE
     Indication: Oesophagitis
     Dosage: 40 MILLIGRAM, ONCE A DAY
     Route: 048
  4. OCTREOTIDE [Concomitant]
     Active Substance: OCTREOTIDE
     Indication: Anaemia
     Dosage: 2 MICROGRAM/KILOGRAM, TWO TIMES A DAY
     Route: 042
  5. MEROPENEM [Concomitant]
     Active Substance: MEROPENEM
     Indication: Product used for unknown indication
     Dosage: 60 MILLIGRAM/KILOGRAM, ONCE A DAY
     Route: 065
  6. PIPERACILLIN SODIUM\TAZOBACTAM SODIUM [Concomitant]
     Active Substance: PIPERACILLIN SODIUM\TAZOBACTAM SODIUM
     Indication: Product used for unknown indication
     Dosage: 300 MILLIGRAM/KILOGRAM, ONCE A DAY
     Route: 065
  7. TEICOPLANIN [Concomitant]
     Active Substance: TEICOPLANIN
     Indication: Product used for unknown indication
     Dosage: 10 MILLIGRAM/KILOGRAM, TWO TIMES A DAY (FOR THREE DOSES)
     Route: 065
  8. TEICOPLANIN [Concomitant]
     Active Substance: TEICOPLANIN
     Dosage: 10 MILLIGRAM/KILOGRAM, ONCE A DAY (FOR 10 DAYS)
     Route: 065
  9. ACYCLOVIR [Concomitant]
     Active Substance: ACYCLOVIR
     Indication: Product used for unknown indication
     Dosage: 30 MILLIGRAM/KILOGRAM, ONCE A DAY
     Route: 065
  10. FLUCONAZOLE [Concomitant]
     Active Substance: FLUCONAZOLE
     Indication: Oral candidiasis
     Dosage: 6 MILLIGRAM/KILOGRAM, ONCE A DAY (ON THE FIRST DAY)
     Route: 065
  11. FLUCONAZOLE [Concomitant]
     Active Substance: FLUCONAZOLE
     Dosage: 3 MILLIGRAM/KILOGRAM, ONCE A DAY (FOR 10 DAYS)
     Route: 065

REACTIONS (2)
  - Cholelithiasis [Unknown]
  - Thrombocytopenia [Unknown]
